FAERS Safety Report 16349555 (Version 1)
Quarter: 2019Q2

REPORT INFORMATION
  Report Type: Spontaneous
  Country: AU (occurrence: AU)
  Receive Date: 20190523
  Receipt Date: 20190523
  Transmission Date: 20190711
  Serious: Yes (Other)
  Sender: FDA-Public Use
  Company Number: AU-WHANIN PHARM. CO., LTD.-2019M1048593

PATIENT
  Age: 60 Year
  Sex: Male

DRUGS (3)
  1. CLOZARIL [Suspect]
     Active Substance: CLOZAPINE
     Indication: SCHIZOPHRENIA
     Dosage: 400 MILLIGRAM
     Route: 048
     Dates: start: 20111008
  2. CLOZARIL [Suspect]
     Active Substance: CLOZAPINE
     Dosage: 500 MILLIGRAM
     Route: 048
     Dates: start: 20190515
  3. CLOZARIL [Suspect]
     Active Substance: CLOZAPINE
     Dosage: 400 MILLIGRAM
     Route: 048
     Dates: start: 20190516

REACTIONS (1)
  - Antipsychotic drug level increased [Unknown]

NARRATIVE: CASE EVENT DATE: 20190516
